FAERS Safety Report 24442012 (Version 2)
Quarter: 2024Q4

REPORT INFORMATION
  Report Type: Spontaneous
  Country: US (occurrence: US)
  Receive Date: 20241016
  Receipt Date: 20241017
  Transmission Date: 20250115
  Serious: No
  Sender: ROCHE
  Company Number: US-ROCHE-3514342

PATIENT
  Age: 10 Year
  Sex: Male

DRUGS (1)
  1. HEMLIBRA [Suspect]
     Active Substance: EMICIZUMAB-KXWH
     Indication: Factor VIII deficiency
     Dosage: 150 MG/ML
     Route: 058

REACTIONS (3)
  - Haemorrhage [Recovered/Resolved]
  - Fall [Unknown]
  - Injury [Unknown]

NARRATIVE: CASE EVENT DATE: 20240210
